FAERS Safety Report 25007452 (Version 5)
Quarter: 2025Q3

REPORT INFORMATION
  Report Type: Report from Study
  Country: US (occurrence: US)
  Receive Date: 20250225
  Receipt Date: 20250919
  Transmission Date: 20251020
  Serious: Yes (Other)
  Sender: JAZZ
  Company Number: US-JAZZ PHARMACEUTICALS-2024-US-020147

PATIENT
  Sex: Female
  Weight: 64.399 kg

DRUGS (12)
  1. EPIDIOLEX [Suspect]
     Active Substance: CANNABIDIOL
     Indication: Lennox-Gastaut syndrome
     Dosage: 1.7 MILLILITER (5.76MG/KG/DAY), BID
     Dates: start: 20241029
  2. EPIDIOLEX [Suspect]
     Active Substance: CANNABIDIOL
     Dosage: 1.7 MILLILITER, BID
     Dates: start: 202410
  3. EPIDIOLEX [Suspect]
     Active Substance: CANNABIDIOL
     Dosage: 3.7 MILLILITER, BID (12.55MILLIGRAM/KILOGRAM/DAY)
     Dates: start: 20241029
  4. EPIDIOLEX [Suspect]
     Active Substance: CANNABIDIOL
  5. EPIDIOLEX [Suspect]
     Active Substance: CANNABIDIOL
     Dosage: 3 MILLILITER, BID (9.51 MILLIGRAM/KILOGRAM/DAY])
     Dates: start: 20241029
  6. EPIDIOLEX [Suspect]
     Active Substance: CANNABIDIOL
     Dosage: 2.7 MILLILITER, BID
  7. EPIDIOLEX [Suspect]
     Active Substance: CANNABIDIOL
     Dosage: 2.5 MILLILITER, BID
  8. EPIDIOLEX [Suspect]
     Active Substance: CANNABIDIOL
     Dosage: 5 MILLILITER, BID
     Dates: start: 202411
  9. EPIDIOLEX [Suspect]
     Active Substance: CANNABIDIOL
  10. FYCOMPA [Concomitant]
     Active Substance: PERAMPANEL
     Indication: Product used for unknown indication
  11. XCOPRI [Concomitant]
     Active Substance: CENOBAMATE
     Indication: Product used for unknown indication
  12. CLOZEPAM [CLONAZEPAM] [Concomitant]
     Indication: Product used for unknown indication

REACTIONS (15)
  - Seizure [Unknown]
  - Atonic seizures [Recovering/Resolving]
  - Ammonia increased [Recovered/Resolved]
  - Somnolence [Unknown]
  - Seizure cluster [Not Recovered/Not Resolved]
  - Seizure [Recovering/Resolving]
  - Atonic seizures [Recovering/Resolving]
  - Rash [Recovered/Resolved]
  - Lip swelling [Recovered/Resolved]
  - Sleep terror [Unknown]
  - Head injury [Unknown]
  - Fatigue [Not Recovered/Not Resolved]
  - Chromaturia [Not Recovered/Not Resolved]
  - Product container issue [Unknown]
  - Therapeutic response unexpected [Unknown]

NARRATIVE: CASE EVENT DATE: 20240101
